FAERS Safety Report 5772084-X (Version None)
Quarter: 2008Q2

REPORT INFORMATION
  Report Type: 
  Country: None (occurrence: None)
  Receive Date: 20080611
  Receipt Date: 20080125
  Transmission Date: 20081010
  Serious: Yes (Other)
  Sender: FDA-Public Use
  Company Number: 026#1#2008-00002

PATIENT
  Age: 60 Year
  Sex: Male

DRUGS (20)
  1. MONOKET [Suspect]
     Dosage: 100 MG (50 MG 2 IN 1 DAY(S))  , ORAL
     Route: 048
  2. ENALAPRIL MALEATE [Concomitant]
  3. CANDESARTAN, CILEXETIL (CANDESARTAN CILEXETIL) [Concomitant]
  4. AMLODIPINE [Concomitant]
  5. DOXAZOSIN MESYLATE [Concomitant]
  6. METOPROLOL SUCCINATE [Concomitant]
  7. ISOSORBIDE MONONITRATE [Concomitant]
  8. FUROSEMIDE [Concomitant]
  9. CINACALCET [Concomitant]
  10. ENOXAPARIN SODIUM [Concomitant]
  11. LANTHANUM CARBONATE [Concomitant]
  12. FOLIC ACID (CALCIUM PHOSPHATE, FOLIC ACID) [Concomitant]
  13. CALCIUM CARBONATE (CALCIUM CARBONATE) [Concomitant]
  14. COLECALCIFEROL (ALFACALCIDOL) [Concomitant]
  15. EPOETIN ALFA (EPOETIN ALFA) [Concomitant]
  16. SACCHARATED IRON OXIDE (SACCHARATED IRON OXIDE) [Concomitant]
  17. SODIUM BICARBONATE [Concomitant]
  18. PREGABALIN [Concomitant]
  19. ACETAMINOPHEN [Concomitant]
  20. PHENOXYBENZAMINE HYDROCHLORIDE [Concomitant]

REACTIONS (6)
  - AZOTAEMIA [None]
  - CALCINOSIS [None]
  - DIALYSIS [None]
  - HYPERTENSION [None]
  - NERVE INJURY [None]
  - POLYNEUROPATHY [None]
